FAERS Safety Report 5123777-9 (Version None)
Quarter: 2006Q4

REPORT INFORMATION
  Report Type: 
  Country: None (occurrence: None)
  Receive Date: 20061010
  Receipt Date: 20060929
  Transmission Date: 20070319
  Serious: Yes (Death)
  Sender: FDA-Public Use
  Company Number: US-ROCHE-465804

PATIENT
  Age: 75 Year
  Sex: Female
  Weight: 58.1 kg

DRUGS (3)
  1. BONIVA [Suspect]
     Indication: OSTEOPOROSIS
     Route: 048
     Dates: end: 20060506
  2. 1 CONCOMITANT DRUG [Concomitant]
     Dosage: DRUG NAME REPORTED AS THYROID MEDICATION (NOS). START DATE REPORTED AS YEARS.
     Dates: end: 20060506
  3. 1 CONCOMITANT DRUG [Concomitant]
     Dosage: DRUG NAME REPORTED AS SEIZURE MEDICATION (NOS). START DATE REPORTED AS YEARS.
     Dates: end: 20060506

REACTIONS (2)
  - CONVULSION [None]
  - FALL [None]
